FAERS Safety Report 4697291-9 (Version None)
Quarter: 2005Q2

REPORT INFORMATION
  Report Type: 
  Country: None (occurrence: None)
  Receive Date: 20050622
  Receipt Date: 20050617
  Transmission Date: 20051028
  Serious: Yes (Hospitalization)
  Sender: FDA-Public Use
  Company Number: 2005CG01129

PATIENT
  Age: 82 Year
  Sex: Male
  Weight: 80 kg

DRUGS (7)
  1. OMEPRAZOLE [Suspect]
     Route: 048
     Dates: start: 20050209, end: 20050226
  2. ASPEGIC 325 [Suspect]
     Route: 048
     Dates: start: 20050121
  3. LASILIX [Suspect]
     Route: 048
     Dates: start: 20050121
  4. RISORDAN [Suspect]
     Route: 042
     Dates: start: 20050121, end: 20050124
  5. CALCIDIA [Suspect]
     Route: 048
     Dates: start: 20050216
  6. OFLOCET [Suspect]
     Route: 048
     Dates: start: 20050211, end: 20050218
  7. CIFLOX [Concomitant]
     Dates: start: 20050209, end: 20050210

REACTIONS (4)
  - DERMATITIS EXFOLIATIVE [None]
  - EOSINOPHILIA [None]
  - ERYTHEMA [None]
  - PRURITUS [None]
